FAERS Safety Report 5380207-X (Version None)
Quarter: 2007Q3

REPORT INFORMATION
  Report Type: 
  Country: None (occurrence: None)
  Receive Date: 20070706
  Receipt Date: 20070614
  Transmission Date: 20080115
  Serious: No
  Sender: FDA-Public Use
  Company Number: A0650828A

PATIENT
  Age: 39 Year
  Sex: Female

DRUGS (6)
  1. TYKERB [Suspect]
     Indication: BREAST CANCER
     Dosage: 3TAB PER DAY
     Route: 048
     Dates: start: 20070401
  2. XELODA [Concomitant]
  3. DARVOCET [Concomitant]
  4. MOBIC [Concomitant]
  5. PHENERGAN HCL [Concomitant]
  6. ZOMETA [Concomitant]

REACTIONS (5)
  - ABDOMINAL PAIN [None]
  - DIARRHOEA [None]
  - DYSPEPSIA [None]
  - FATIGUE [None]
  - NAUSEA [None]
